FAERS Safety Report 5008147-6 (Version None)
Quarter: 2006Q2

REPORT INFORMATION
  Report Type: 
  Country: None (occurrence: None)
  Receive Date: 20060404
  Receipt Date: 20051003
  Transmission Date: 20061013
  Serious: Yes (Disabling, Other)
  Sender: FDA-Public Use
  Company Number: 2005131568

PATIENT
  Age: 45 Year
  Sex: Female
  Weight: 47.1741 kg

DRUGS (4)
  1. GEODON [Suspect]
     Indication: BIPOLAR DISORDER
     Dosage: 40 MG (40 MG, 1 IN 1 D), ORAL
     Route: 048
     Dates: start: 20040101
  2. TOPAMAX [Concomitant]
  3. XANAX [Concomitant]
  4. DEPAKOTE [Concomitant]

REACTIONS (3)
  - INFLAMMATION [None]
  - PAIN IN EXTREMITY [None]
  - PARALYSIS [None]
